FAERS Safety Report 24534020 (Version 1)
Quarter: 2024Q4

REPORT INFORMATION
  Report Type: Spontaneous
  Country: US (occurrence: None)
  Receive Date: 20241021
  Receipt Date: 20241021
  Transmission Date: 20250114
  Serious: Yes (Death, Hospitalization)
  Sender: Public
  Company Number: None

PATIENT
  Age: 70 Year
  Sex: Female

DRUGS (4)
  1. OFEV [Suspect]
     Active Substance: NINTEDANIB
     Indication: Pulmonary fibrosis
     Dosage: FREQUENCY : TWICE A DAY;?
     Route: 048
     Dates: start: 20240815, end: 20241015
  2. LEUCOVORIN [Suspect]
     Active Substance: LEUCOVORIN\LEUCOVORIN CALCIUM
  3. FLUOROURACIL [Suspect]
     Active Substance: FLUOROURACIL
  4. OXALIPLATIN [Suspect]
     Active Substance: OXALIPLATIN

REACTIONS (7)
  - Rectal cancer metastatic [None]
  - Cardiac failure congestive [None]
  - Interstitial lung disease [None]
  - Pneumonia [None]
  - Condition aggravated [None]
  - Respiratory failure [None]
  - Acute respiratory distress syndrome [None]

NARRATIVE: CASE EVENT DATE: 20241016
